FAERS Safety Report 4960213-7 (Version None)
Quarter: 2006Q1

REPORT INFORMATION
  Report Type: 
  Country: None (occurrence: None)
  Receive Date: 20060328
  Receipt Date: 20051110
  Transmission Date: 20060701
  Serious: Yes (Other)
  Sender: FDA-Public Use
  Company Number: 2005112074

PATIENT
  Age: 70 Year
  Sex: Male

DRUGS (2)
  1. BEXTRA [Suspect]
     Indication: ARTHRITIS
     Dosage: 10 MG
     Dates: start: 20040203
  2. EFUDEX [Suspect]
     Indication: BASAL CELL CARCINOMA

REACTIONS (2)
  - ANGIONEUROTIC OEDEMA [None]
  - APPLICATION SITE OEDEMA [None]
